FAERS Safety Report 5394071-6 (Version None)
Quarter: 2007Q3

REPORT INFORMATION
  Report Type: 
  Country: None (occurrence: None)
  Receive Date: 20070723
  Receipt Date: 20070222
  Transmission Date: 20080115
  Serious: No
  Sender: FDA-Public Use
  Company Number: A0640584A

PATIENT
  Age: 73 Year
  Sex: Female

DRUGS (5)
  1. AVANDIA [Suspect]
     Dosage: 8MG PER DAY
     Route: 048
  2. GLIPIZIDE [Concomitant]
  3. ATACAND HCT [Concomitant]
  4. FLUOXETINE [Concomitant]
  5. ASPIRIN [Concomitant]

REACTIONS (1)
  - WEIGHT INCREASED [None]
